FAERS Safety Report 10050369 (Version 2)
Quarter: 2014Q2

REPORT INFORMATION
  Report Type: Spontaneous
  Country: DE (occurrence: DE)
  Receive Date: 20140401
  Receipt Date: 20140410
  Transmission Date: 20141212
  Serious: Yes (Other)
  Sender: FDA-Public Use
  Company Number: DE-BAYER-2014-047008

PATIENT
  Sex: Female

DRUGS (1)
  1. AVALOX [Suspect]
     Indication: SINUSITIS
     Dosage: 400 MG, UNK
     Dates: start: 20140321

REACTIONS (2)
  - Ageusia [None]
  - Anosmia [None]
